FAERS Safety Report 22653050 (Version 1)
Quarter: 2023Q2

REPORT INFORMATION
  Report Type: Other
  Country: DE (occurrence: DE)
  Receive Date: 20230629
  Receipt Date: 20230629
  Transmission Date: 20230721
  Serious: Yes (Other)
  Sender: FDA-Public Use
  Company Number: DE-CELLTRION INC.-2023DE012859

PATIENT

DRUGS (1)
  1. ADALIMUMAB [Suspect]
     Active Substance: ADALIMUMAB
     Indication: Product used for unknown indication
     Dosage: 40 MG EVERY 2 WEEKS
     Route: 058
     Dates: start: 201812, end: 202211

REACTIONS (8)
  - Rheumatoid arthritis [Unknown]
  - Sepsis [Unknown]
  - Chills [Unknown]
  - Synovitis [Unknown]
  - Oligoarthritis [Unknown]
  - Pyrexia [Unknown]
  - Headache [Unknown]
  - Arthritis [Unknown]

NARRATIVE: CASE EVENT DATE: 20181201
